FAERS Safety Report 4477906-0 (Version None)
Quarter: 2004Q4

REPORT INFORMATION
  Report Type: 
  Country: None (occurrence: None)
  Receive Date: 20041018
  Receipt Date: 20041004
  Transmission Date: 20050328
  Serious: Yes (Hospitalization)
  Sender: FDA-Public Use
  Company Number: NZ-MERCK-0410NZL00012

PATIENT
  Age: 75 Year
  Sex: Male

DRUGS (10)
  1. ACETAMINOPHEN [Concomitant]
     Indication: PAIN
     Route: 048
     Dates: start: 19970101
  2. ASPIRIN [Concomitant]
     Indication: CARDIAC DISORDER
     Route: 048
     Dates: start: 19970101
  3. BENDROFLUMETHIAZIDE [Concomitant]
     Indication: CARDIAC DISORDER
     Route: 048
     Dates: start: 19970101
  4. CELIPROLOL HYDROCHLORIDE [Concomitant]
     Indication: BLOOD PRESSURE
     Route: 048
     Dates: start: 19970101
  5. FLUOXETINE HYDROCHLORIDE [Concomitant]
     Indication: POLLAKIURIA
     Route: 048
     Dates: start: 19970101
  6. VIOXX [Suspect]
     Indication: OSTEOARTHRITIS
     Route: 048
     Dates: start: 20031201, end: 20040101
  7. VIOXX [Suspect]
     Route: 048
     Dates: start: 20040101, end: 20041001
  8. VIOXX [Suspect]
     Indication: MOTOR DYSFUNCTION
     Route: 048
     Dates: start: 20031201, end: 20040101
  9. VIOXX [Suspect]
     Route: 048
     Dates: start: 20040101, end: 20041001
  10. TERAZOSIN HYDROCHLORIDE [Concomitant]
     Indication: POLLAKIURIA
     Route: 048
     Dates: start: 19970101

REACTIONS (1)
  - CEREBROVASCULAR ACCIDENT [None]
